FAERS Safety Report 5518762-9 (Version None)
Quarter: 2007Q4

REPORT INFORMATION
  Report Type: 
  Country: None (occurrence: None)
  Receive Date: 20071115
  Receipt Date: 20071105
  Transmission Date: 20080405
  Serious: Yes (Life-Threatening, Hospitalization)
  Sender: FDA-Public Use
  Company Number: FR-GENENTECH-251243

PATIENT
  Age: 76 Year
  Sex: Female

DRUGS (1)
  1. MABTHERA [Suspect]
     Indication: RHEUMATOID ARTHRITIS
     Dosage: 1 G, 1/MONTH
     Route: 042
     Dates: start: 20070820

REACTIONS (1)
  - TOXIC EPIDERMAL NECROLYSIS [None]
